FAERS Safety Report 21517837 (Version 1)
Quarter: 2022Q4

REPORT INFORMATION
  Report Type: Report from Study
  Country: US (occurrence: US)
  Receive Date: 20221028
  Receipt Date: 20221028
  Transmission Date: 20230113
  Serious: Yes (Hospitalization, Other)
  Sender: FDA-Public Use
  Company Number: US-ABBVIE-22K-163-4388434-00

PATIENT
  Age: 61 Year
  Sex: Female
  Weight: 73 kg

DRUGS (5)
  1. HUMIRA [Suspect]
     Active Substance: ADALIMUMAB
     Indication: Crohn^s disease
     Route: 058
     Dates: start: 201704, end: 201809
  2. HUMIRA [Suspect]
     Active Substance: ADALIMUMAB
     Indication: Colitis ulcerative
     Route: 058
     Dates: start: 201809
  3. MODERNA COVID-19 VACCINE [Suspect]
     Active Substance: ELASOMERAN
     Indication: COVID-19 immunisation
     Dosage: TIME INTERVAL: 1 TOTAL: DOSE1
     Route: 030
     Dates: start: 20211012, end: 20211012
  4. MODERNA COVID-19 VACCINE [Suspect]
     Active Substance: ELASOMERAN
     Indication: COVID-19 immunisation
     Dosage: TIME INTERVAL: 1 TOTAL: DOSE2
     Route: 030
     Dates: start: 20211027, end: 20211027
  5. MODERNA COVID-19 VACCINE [Suspect]
     Active Substance: ELASOMERAN
     Indication: COVID-19 immunisation
     Dosage: TIME INTERVAL: 1 TOTAL: BOOSTER
     Route: 030
     Dates: start: 20220126, end: 20220126

REACTIONS (23)
  - Therapeutic nerve ablation [Recovering/Resolving]
  - Bleeding time shortened [Unknown]
  - Illness [Recovering/Resolving]
  - Malaise [Unknown]
  - Depression [Recovering/Resolving]
  - Fibromyalgia [Recovering/Resolving]
  - Peripheral swelling [Recovering/Resolving]
  - Feeding disorder [Recovered/Resolved]
  - Abdominal distension [Recovering/Resolving]
  - Muscle tightness [Recovering/Resolving]
  - Neck pain [Recovering/Resolving]
  - Neuralgia [Unknown]
  - Fungal foot infection [Not Recovered/Not Resolved]
  - Pain [Unknown]
  - Malnutrition [Not Recovered/Not Resolved]
  - Blood iron decreased [Recovering/Resolving]
  - Angina pectoris [Recovering/Resolving]
  - Gastrooesophageal reflux disease [Recovering/Resolving]
  - Body temperature decreased [Recovered/Resolved]
  - Eczema [Recovering/Resolving]
  - Gastric polyps [Unknown]
  - Oesophageal disorder [Recovering/Resolving]
  - Malnutrition [Recovered/Resolved]

NARRATIVE: CASE EVENT DATE: 20171001
